FAERS Safety Report 12282142 (Version 1)
Quarter: 2016Q2

REPORT INFORMATION
  Report Type: Spontaneous
  Country: US (occurrence: US)
  Receive Date: 20160419
  Receipt Date: 20160419
  Transmission Date: 20160815
  Serious: No
  Sender: FDA-Public Use
  Company Number: US-BAYER-2016-073303

PATIENT
  Age: 70 Year
  Sex: Male
  Weight: 49.88 kg

DRUGS (7)
  1. BAYER LOW DOSE [Concomitant]
     Active Substance: ASPIRIN
     Indication: ISCHAEMIC HEART DISEASE PROPHYLAXIS
     Dosage: UNK UNK, QD
  2. METFORMIN [Concomitant]
     Active Substance: METFORMIN HYDROCHLORIDE
     Dosage: UNK UNK, BID
  3. MIRALAX [Suspect]
     Active Substance: POLYETHYLENE GLYCOL 3350
     Indication: CONSTIPATION
     Dosage: 1 DF, QD
     Route: 048
     Dates: start: 2013
  4. FINASTID [Concomitant]
  5. LOVASTATIN. [Concomitant]
     Active Substance: LOVASTATIN
     Dosage: UNK UNK, QD
  6. GLIPIZID GENERICS [Concomitant]
     Dosage: UNK UNK, BID
  7. CARBOLEVURE [CHARCOAL, ACTIVATED,YEAST DRIED] [Concomitant]

REACTIONS (2)
  - Off label use [None]
  - Pollakiuria [None]

NARRATIVE: CASE EVENT DATE: 2013
